FAERS Safety Report 10295494 (Version 1)
Quarter: 2014Q3

REPORT INFORMATION
  Report Type: Spontaneous
  Country: US (occurrence: US)
  Receive Date: 20140710
  Receipt Date: 20140710
  Transmission Date: 20150326
  Serious: No
  Sender: FDA-Public Use
  Company Number: US-PURDUE-USA-2014-0113126

PATIENT
  Age: 58 Year
  Sex: Male

DRUGS (2)
  1. ALOE VERA [Concomitant]
     Active Substance: ALOE VERA LEAF
     Indication: PRURITUS
     Dosage: UNK UNK, PRN
     Route: 061
  2. BUTRANS [Suspect]
     Active Substance: BUPRENORPHINE
     Indication: COMPLEX REGIONAL PAIN SYNDROME
     Dosage: 10 MCG/HR, WEEKLY
     Route: 062
     Dates: start: 2012

REACTIONS (2)
  - Pruritus [Not Recovered/Not Resolved]
  - Product contamination [Unknown]

NARRATIVE: CASE EVENT DATE: 201404
